FAERS Safety Report 6568168-9 (Version None)
Quarter: 2010Q1

REPORT INFORMATION
  Report Type: 
  Country: None (occurrence: None)
  Receive Date: 20100203
  Receipt Date: 20091201
  Transmission Date: 20100710
  Serious: Yes (Other)
  Sender: FDA-Public Use
  Company Number: AU-SANOFI-AVENTIS-2009SA006087

PATIENT
  Sex: Female

DRUGS (1)
  1. PLAQUENIL [Suspect]
     Route: 065

REACTIONS (1)
  - JAUNDICE CHOLESTATIC [None]
